FAERS Safety Report 23089773 (Version 2)
Quarter: 2023Q4

REPORT INFORMATION
  Report Type: Spontaneous
  Country: US (occurrence: US)
  Receive Date: 20231020
  Receipt Date: 20231116
  Transmission Date: 20240109
  Serious: Yes (Disabling, Other)
  Sender: FDA-Public Use
  Company Number: US-REGENERON PHARMACEUTICALS, INC.-2023-124871

PATIENT
  Sex: Male

DRUGS (1)
  1. EYLEA [Suspect]
     Active Substance: AFLIBERCEPT
     Indication: Diabetic retinal oedema
     Dosage: 2 MG, APPROX. MONTHLY (4-6 WEEKS); BOTH EYES, 40 MG/ML; PRE-FILLED SYRINGE (GERRESHEIMER)

REACTIONS (3)
  - Blindness unilateral [Recovering/Resolving]
  - Endophthalmitis [Recovering/Resolving]
  - Visual acuity reduced [Unknown]

NARRATIVE: CASE EVENT DATE: 20230101
